FAERS Safety Report 18280631 (Version 1)
Quarter: 2020Q3

REPORT INFORMATION
  Report Type: Spontaneous
  Country: US (occurrence: US)
  Receive Date: 20200917
  Receipt Date: 20200917
  Transmission Date: 20201103
  Serious: Yes (Hospitalization)
  Sender: FDA-Public Use
  Company Number: US-BRAINTREE LABORATORIES-200342

PATIENT
  Age: 76 Year
  Sex: Female
  Weight: 69.4 kg

DRUGS (1)
  1. SUPREP BOWEL PREP [Suspect]
     Active Substance: MAGNESIUM SULFATE\POTASSIUM SULFATE\SODIUM SULFATE
     Indication: COLONOSCOPY
     Dosage: 2 X 6 OZ. BOTTLE
     Route: 048
     Dates: start: 20200912, end: 20200913

REACTIONS (4)
  - Abdominal pain [None]
  - Dysuria [None]
  - Burn of internal organs [None]
  - Abdominal distension [None]

NARRATIVE: CASE EVENT DATE: 20200912
